FAERS Safety Report 20292336 (Version 1)
Quarter: 2022Q1

REPORT INFORMATION
  Report Type: Spontaneous
  Country: CN (occurrence: CN)
  Receive Date: 20220104
  Receipt Date: 20220104
  Transmission Date: 20220423
  Serious: Yes (Other)
  Sender: FDA-Public Use
  Company Number: CN-PFIZER INC-202101851541

PATIENT
  Age: 16 Year
  Sex: Female

DRUGS (5)
  1. SOLU-MEDROL [Suspect]
     Active Substance: METHYLPREDNISOLONE SODIUM SUCCINATE
     Indication: Myocardial injury
     Dosage: 60 MG, 1X/DAY
     Route: 041
     Dates: start: 20211209, end: 20211214
  2. SOLU-MEDROL [Suspect]
     Active Substance: METHYLPREDNISOLONE SODIUM SUCCINATE
     Indication: Systemic lupus erythematosus
     Dosage: 500 MG, 1X/DAY
     Route: 041
     Dates: start: 20211215, end: 20211215
  3. SOLU-MEDROL [Suspect]
     Active Substance: METHYLPREDNISOLONE SODIUM SUCCINATE
     Indication: Lupus nephritis
  4. SOLU-MEDROL [Suspect]
     Active Substance: METHYLPREDNISOLONE SODIUM SUCCINATE
     Indication: Gastroenteritis
  5. SOLU-MEDROL [Suspect]
     Active Substance: METHYLPREDNISOLONE SODIUM SUCCINATE
     Indication: Dehydration

REACTIONS (1)
  - Ocular hypertension [Recovering/Resolving]

NARRATIVE: CASE EVENT DATE: 20211216
